FAERS Safety Report 8830822 (Version 1)
Quarter: 2012Q4

REPORT INFORMATION
  Report Type: 
  Country: US (occurrence: US)
  Receive Date: 20121009
  Receipt Date: 20121009
  Transmission Date: 20130627
  Serious: No
  Sender: FDA-Public Use
  Company Number: US-PFIZER INC-2012248412

PATIENT
  Age: 38 Year
  Sex: Female
  Weight: 90.7 kg

DRUGS (2)
  1. ZOLOFT [Suspect]
     Indication: DEPRESSION
     Dosage: UNK, 1x/day
     Route: 048
     Dates: start: 201206
  2. ZOLOFT [Suspect]
     Indication: ANXIETY

REACTIONS (1)
  - Drug screen positive [Unknown]
